FAERS Safety Report 15489963 (Version 2)
Quarter: 2019Q2

REPORT INFORMATION
  Report Type: Spontaneous
  Country: JP (occurrence: JP)
  Receive Date: 20181011
  Receipt Date: 20190403
  Transmission Date: 20190711
  Serious: No
  Sender: FDA-Public Use
  Company Number: JP-009507513-1810JPN004754

PATIENT
  Age: 66 Year
  Sex: Male

DRUGS (2)
  1. GLACTIV [Suspect]
     Active Substance: SITAGLIPTIN
     Indication: TYPE 2 DIABETES MELLITUS
     Dosage: 50 MG, EVERYDAY
     Route: 048
     Dates: start: 20180416, end: 20181003
  2. FORXIGA [Concomitant]
     Active Substance: DAPAGLIFLOZIN
     Indication: PRODUCT USED FOR UNKNOWN INDICATION
     Dosage: UNK MG
     Route: 048
     Dates: start: 201712, end: 201902

REACTIONS (1)
  - Nail bed bleeding [Recovering/Resolving]

NARRATIVE: CASE EVENT DATE: 20181004
